FAERS Safety Report 9519113 (Version 1)
Quarter: 2013Q3

REPORT INFORMATION
  Report Type: Spontaneous
  Country: US (occurrence: None)
  Receive Date: 20130911
  Receipt Date: 20130911
  Transmission Date: 20140515
  Serious: Yes (Disabling, Other)
  Sender: FDA-Public Use
  Company Number: None

PATIENT
  Age: 59 Year
  Sex: Male
  Weight: 77.11 kg

DRUGS (1)
  1. INTERFERON [Suspect]
     Indication: MALIGNANT MELANOMA
     Route: 030
     Dates: start: 20091003, end: 20091105

REACTIONS (2)
  - Product quality issue [None]
  - Visual acuity reduced [None]
